FAERS Safety Report 6595055-2 (Version None)
Quarter: 2010Q1

REPORT INFORMATION
  Report Type: 
  Country: None (occurrence: None)
  Receive Date: 20100222
  Receipt Date: 20100212
  Transmission Date: 20100710
  Serious: Yes (Death)
  Sender: FDA-Public Use
  Company Number: US-ABBOTT-10P-163-0626815-00

PATIENT
  Age: 45 Year
  Sex: Female

DRUGS (5)
  1. ACETAMINOPHEN AND HYDROCODONE BITARTRATE [Suspect]
     Indication: DRUG USE FOR UNKNOWN INDICATION
     Dosage: INGESTED
  2. ACETAMINOPHEN [Suspect]
     Indication: DRUG USE FOR UNKNOWN INDICATION
     Dosage: INGESTED
  3. OXYCODONE HCL [Suspect]
     Indication: DRUG USE FOR UNKNOWN INDICATION
     Dosage: INGESTED
  4. ETHANOL [Suspect]
     Indication: DRUG USE FOR UNKNOWN INDICATION
     Dosage: INGESTED
  5. SALICYLATES NOS [Suspect]
     Indication: DRUG USE FOR UNKNOWN INDICATION
     Dosage: INGESTED

REACTIONS (2)
  - CARDIO-RESPIRATORY ARREST [None]
  - COMPLETED SUICIDE [None]
